FAERS Safety Report 12274006 (Version 1)
Quarter: 2016Q2

REPORT INFORMATION
  Report Type: Spontaneous
  Country: US (occurrence: US)
  Receive Date: 20160415
  Receipt Date: 20160415
  Transmission Date: 20160815
  Serious: No
  Sender: FDA-Public Use
  Company Number: US-ALLERGAN-1516197US

PATIENT
  Age: 67 Year
  Sex: Female
  Weight: 68.27 kg

DRUGS (2)
  1. LATISSE [Suspect]
     Active Substance: BIMATOPROST
     Indication: GROWTH OF EYELASHES
     Dosage: 2 UNK, UNK
     Route: 061
     Dates: start: 20150816, end: 20150816
  2. LATISSE [Suspect]
     Active Substance: BIMATOPROST
     Dosage: UNK
     Dates: start: 2013

REACTIONS (3)
  - Ocular hyperaemia [Recovered/Resolved]
  - Eye irritation [Recovered/Resolved]
  - Eye pruritus [Recovered/Resolved]

NARRATIVE: CASE EVENT DATE: 20150817
